FAERS Safety Report 4946747-X (Version None)
Quarter: 2006Q1

REPORT INFORMATION
  Report Type: 
  Country: None (occurrence: None)
  Receive Date: 20060317
  Receipt Date: 20050829
  Transmission Date: 20060701
  Serious: Yes (Hospitalization)
  Sender: FDA-Public Use
  Company Number: US-MERCK-0508USA04628

PATIENT
  Age: 62 Year
  Sex: Female
  Weight: 95 kg

DRUGS (1)
  1. VIOXX [Suspect]
     Indication: DIABETIC NEUROPATHY
     Route: 048
     Dates: start: 20030101, end: 20031101

REACTIONS (4)
  - CHEST PAIN [None]
  - INJURY [None]
  - MYOCARDIAL INFARCTION [None]
  - PNEUMONIA [None]
